FAERS Safety Report 15989158 (Version 1)
Quarter: 2019Q1

REPORT INFORMATION
  Report Type: Spontaneous
  Country: SE (occurrence: SE)
  Receive Date: 20190221
  Receipt Date: 20190221
  Transmission Date: 20190418
  Serious: Yes (Other)
  Sender: FDA-Public Use
  Company Number: SE-ACCORD-108918

PATIENT
  Age: 46 Year
  Sex: Female

DRUGS (12)
  1. PARGITAN [Concomitant]
     Active Substance: TRIHEXYPHENIDYL HYDROCHLORIDE
  2. OMEPRAZOLE. [Concomitant]
     Active Substance: OMEPRAZOLE
  3. TROMBYL [Concomitant]
     Active Substance: ASPIRIN
  4. OXASCAND [Concomitant]
     Active Substance: OXAZEPAM
  5. LEPONEX [Suspect]
     Active Substance: CLOZAPINE
     Indication: PRODUCT USED FOR UNKNOWN INDICATION
     Route: 048
  6. ALVEDON [Concomitant]
     Active Substance: ACETAMINOPHEN
  7. STESOLID [Concomitant]
     Active Substance: DIAZEPAM
  8. CLOZAPINE. [Suspect]
     Active Substance: CLOZAPINE
     Indication: PRODUCT USED FOR UNKNOWN INDICATION
     Route: 048
  9. CLOZAPINE ACTAVIS [Suspect]
     Active Substance: CLOZAPINE
     Indication: PRODUCT USED FOR UNKNOWN INDICATION
     Route: 048
  10. METOPROLOL. [Concomitant]
     Active Substance: METOPROLOL
  11. SALURES [Concomitant]
     Active Substance: BENDROFLUMETHIAZIDE
  12. ERGENYL [Concomitant]
     Active Substance: VALPROIC ACID

REACTIONS (8)
  - Fatigue [Recovered/Resolved]
  - Hallucination [Recovered/Resolved]
  - Intentional self-injury [Recovered/Resolved]
  - Spinal fracture [Recovered/Resolved]
  - Blood pressure increased [Recovering/Resolving]
  - Aggression [Recovered/Resolved]
  - General physical health deterioration [Recovered/Resolved]
  - Psychotic disorder [Recovered/Resolved]

NARRATIVE: CASE EVENT DATE: 2011
